FAERS Safety Report 6770189-8 (Version None)
Quarter: 2010Q2

REPORT INFORMATION
  Report Type: 
  Country: None (occurrence: None)
  Receive Date: 20100615
  Receipt Date: 20100602
  Transmission Date: 20101027
  Serious: Yes (Other)
  Sender: FDA-Public Use
  Company Number: US-ELI_LILLY_AND_COMPANY-US200908004983

PATIENT
  Age: 44 Year
  Sex: Female

DRUGS (5)
  1. CYMBALTA [Suspect]
     Indication: FIBROMYALGIA
     Dosage: 60 MG, UNK
     Dates: start: 20090501
  2. ATENOLOL [Concomitant]
  3. ENBREL [Concomitant]
  4. HORMONES AND RELATED AGENTS [Concomitant]
  5. PREDNISONE [Concomitant]

REACTIONS (1)
  - ARRHYTHMIA [None]
